FAERS Safety Report 10556498 (Version 1)
Quarter: 2014Q4

REPORT INFORMATION
  Report Type: Spontaneous
  Country: FR (occurrence: FR)
  Receive Date: 20141031
  Receipt Date: 20141031
  Transmission Date: 20150529
  Serious: Yes (Other)
  Sender: FDA-Public Use
  Company Number: FR-AUROBINDO-AUR-APL-2014-11250

PATIENT
  Age: 50 Year
  Sex: Male

DRUGS (1)
  1. TERBINAFINE [Suspect]
     Active Substance: TERBINAFINE
     Indication: NAIL DISORDER
     Dosage: 1 DF, DAILY
     Dates: start: 20140830, end: 20140904

REACTIONS (3)
  - Ventricular extrasystoles [Recovered/Resolved]
  - Ageusia [Recovered/Resolved]
  - Asthenia [Recovered/Resolved]

NARRATIVE: CASE EVENT DATE: 20140901
